FAERS Safety Report 8621701-5 (Version None)
Quarter: 2012Q3

REPORT INFORMATION
  Report Type: 
  Country: None (occurrence: None)
  Receive Date: 20120821
  Receipt Date: 20120821
  Transmission Date: 20120928
  Serious: Yes (Hospitalization)
  Sender: FDA-Public Use
  Company Number: None

PATIENT
  Age: 83 Year
  Sex: Female
  Weight: 113.8529 kg

DRUGS (1)
  1. REUMAFAN PLUS [Suspect]
     Indication: ARTHRITIS
     Dosage: 1 TABLETS, 2 TIMES PER DAY, PO
     Route: 048
     Dates: start: 20111124, end: 20120312

REACTIONS (7)
  - FATIGUE [None]
  - SWELLING [None]
  - MUSCLE SPASMS [None]
  - WEIGHT INCREASED [None]
  - RENAL IMPAIRMENT [None]
  - SYNCOPE [None]
  - ELECTROCARDIOGRAM ABNORMAL [None]
